FAERS Safety Report 14005831 (Version 1)
Quarter: 2017Q3

REPORT INFORMATION
  Report Type: Other
  Country: US (occurrence: US)
  Receive Date: 20170924
  Receipt Date: 20170924
  Transmission Date: 20171128
  Serious: No
  Sender: FDA-Public Use
  Company Number: US-APOTEX-2017AP013940

PATIENT
  Age: 49 Year
  Sex: Female

DRUGS (1)
  1. FLUTICASONE PROPIONATE NASAL SPRAY USP [Suspect]
     Active Substance: FLUTICASONE PROPIONATE
     Indication: PRODUCT USED FOR UNKNOWN INDICATION
     Route: 045

REACTIONS (1)
  - Upper-airway cough syndrome [Unknown]
